FAERS Safety Report 4871637-0 (Version None)
Quarter: 2006Q1

REPORT INFORMATION
  Report Type: 
  Country: None (occurrence: None)
  Receive Date: 20060104
  Receipt Date: 20051228
  Transmission Date: 20060701
  Serious: Yes (Death)
  Sender: FDA-Public Use
  Company Number: PHEH2005US13897

PATIENT

DRUGS (1)
  1. FEMARA [Suspect]
     Dosage: UNK, UNK
     Route: 064

REACTIONS (3)
  - DEATH NEONATAL [None]
  - DRUG EXPOSURE DURING PREGNANCY [None]
  - UMBILICAL CORD AROUND NECK [None]
